FAERS Safety Report 8975414 (Version 2)
Quarter: 2013Q2

REPORT INFORMATION
  Report Type: Spontaneous
  Country: US (occurrence: US)
  Receive Date: 20121219
  Receipt Date: 20130606
  Transmission Date: 20140414
  Serious: No
  Sender: FDA-Public Use
  Company Number: US-AMGEN-USASP2012073114

PATIENT
  Age: 77 Year
  Sex: Female

DRUGS (8)
  1. PROLIA [Suspect]
     Indication: OSTEOPOROSIS POSTMENOPAUSAL
     Dosage: UNK
     Dates: start: 2012
  2. PROLIA [Suspect]
  3. ADVAIR [Concomitant]
  4. AMLODIPINE [Concomitant]
  5. PRAVASTATIN [Concomitant]
  6. CALCIUM WITH VITAMIN D             /00944201/ [Concomitant]
  7. SERTRALINE [Concomitant]
  8. PRESERVISION [Concomitant]

REACTIONS (5)
  - Back pain [Unknown]
  - Myalgia [Unknown]
  - Urine odour abnormal [Unknown]
  - Chromaturia [Unknown]
  - Flatulence [Not Recovered/Not Resolved]
